FAERS Safety Report 17858074 (Version 7)
Quarter: 2022Q3

REPORT INFORMATION
  Report Type: Spontaneous
  Country: JP (occurrence: JP)
  Receive Date: 20200604
  Receipt Date: 20220713
  Transmission Date: 20221027
  Serious: Yes (Life-Threatening, Hospitalization, Other)
  Sender: FDA-Public Use
  Company Number: JP-GLAXOSMITHKLINE-JP2020JPN091378

PATIENT

DRUGS (5)
  1. VALTREX [Suspect]
     Active Substance: VALACYCLOVIR HYDROCHLORIDE
     Indication: Herpes zoster
     Dosage: 1000 MG, TID
     Route: 048
     Dates: start: 20200525, end: 20200527
  2. LEVOTHYROXINE SODIUM [Concomitant]
     Active Substance: LEVOTHYROXINE SODIUM
     Indication: Hypothyroidism
     Dosage: 50 MG, QD
     Route: 048
  3. AMLODIPINE BESYLATE [Concomitant]
     Active Substance: AMLODIPINE BESYLATE
     Indication: Hypertension
     Dosage: 5 MG, QD
     Route: 048
  4. LANSOPRAZOLE-OD TABLETS [Concomitant]
     Dosage: 15 MG, QD
     Route: 048
  5. FERROUS SODIUM CITRATE TABLETS [Concomitant]
     Indication: Iron deficiency anaemia
     Dosage: 50 MG, QD
     Route: 048

REACTIONS (9)
  - Toxic encephalopathy [Recovering/Resolving]
  - Altered state of consciousness [Recovering/Resolving]
  - Renal impairment [Unknown]
  - Logorrhoea [Recovered/Resolved]
  - Agitation [Recovered/Resolved]
  - Asthenia [Recovered/Resolved]
  - Decubitus ulcer [Unknown]
  - Prescribed overdose [Unknown]
  - Product prescribing error [Unknown]

NARRATIVE: CASE EVENT DATE: 20200525
